FAERS Safety Report 22152919 (Version 1)
Quarter: 2023Q1

REPORT INFORMATION
  Report Type: Spontaneous
  Country: US (occurrence: None)
  Receive Date: 20230329
  Receipt Date: 20230329
  Transmission Date: 20230417
  Serious: Yes (Other)
  Sender: FDA-Public Use
  Company Number: None

PATIENT
  Age: 34 Year
  Sex: Female
  Weight: 165.15 kg

DRUGS (1)
  1. DULOXETINE [Suspect]
     Active Substance: DULOXETINE
     Indication: Fibromyalgia

REACTIONS (6)
  - Drug dependence [None]
  - Withdrawal syndrome [None]
  - Nausea [None]
  - Dizziness [None]
  - Speech disorder [None]
  - Cold sweat [None]
